FAERS Safety Report 7302247-3 (Version None)
Quarter: 2011Q1

REPORT INFORMATION
  Report Type: 
  Country: None (occurrence: None)
  Receive Date: 20110218
  Receipt Date: 20110214
  Transmission Date: 20110831
  Serious: Yes (Other)
  Sender: FDA-Public Use
  Company Number: CH-ABBOTT-11P-151-0705617-00

PATIENT
  Age: 43 Year
  Sex: Male

DRUGS (7)
  1. BLOPRESS [Concomitant]
     Indication: HYPERTENSION
     Dates: start: 20091106, end: 20110103
  2. MARCUMAR [Concomitant]
     Indication: PRODUCT USED FOR UNKNOWN INDICATION
     Route: 048
     Dates: start: 20090106, end: 20110103
  3. TRUVADA [Suspect]
     Indication: HIV INFECTION
     Dates: start: 20060201, end: 20110103
  4. NORVIR [Suspect]
     Indication: HIV INFECTION
     Dates: start: 20060201, end: 20110102
  5. REYATAZ [Suspect]
     Indication: HIV INFECTION
     Dates: start: 20060201, end: 20110103
  6. RITALIN [Concomitant]
     Indication: ATTENTION DEFICIT/HYPERACTIVITY DISORDER
     Route: 048
     Dates: start: 20080331, end: 20110103
  7. BUPRENORPHINE [Concomitant]
     Indication: DRUG DEPENDENCE
     Dates: start: 20050513

REACTIONS (7)
  - RENAL ATROPHY [None]
  - CHILLS [None]
  - HAEMATURIA [None]
  - RENAL FAILURE ACUTE [None]
  - ANURIA [None]
  - PROTEINURIA [None]
  - PYREXIA [None]
